FAERS Safety Report 12405396 (Version 1)
Quarter: 2016Q2

REPORT INFORMATION
  Report Type: Report from Study
  Country: US (occurrence: US)
  Receive Date: 20160525
  Receipt Date: 20160525
  Transmission Date: 20160815
  Serious: No
  Sender: FDA-Public Use
  Company Number: US-AMGEN-USASL2016064811

PATIENT
  Age: 46 Year
  Sex: Female

DRUGS (1)
  1. ENBREL [Suspect]
     Active Substance: ETANERCEPT
     Indication: RHEUMATOID ARTHRITIS
     Dosage: 50 MG, QWK
     Route: 065
     Dates: start: 20160503

REACTIONS (11)
  - Nausea [Unknown]
  - Injection site rash [Unknown]
  - Injection site induration [Unknown]
  - Injection site bruising [Unknown]
  - Injection site erythema [Unknown]
  - Hot flush [Unknown]
  - Dizziness [Unknown]
  - Flushing [Unknown]
  - Injection site haemorrhage [Unknown]
  - Headache [Unknown]
  - Dysphonia [Unknown]

NARRATIVE: CASE EVENT DATE: 201605
